FAERS Safety Report 20405419 (Version 1)
Quarter: 2022Q1

REPORT INFORMATION
  Report Type: Spontaneous
  Country: FR (occurrence: FR)
  Receive Date: 20220131
  Receipt Date: 20220131
  Transmission Date: 20220423
  Serious: Yes (Hospitalization)
  Sender: FDA-Public Use
  Company Number: None

PATIENT
  Age: 53 Year
  Sex: Male
  Weight: 84 kg

DRUGS (7)
  1. SIMVASTATIN [Suspect]
     Active Substance: SIMVASTATIN
     Indication: Product administration error
     Dosage: 1 DOSAGE FORMS
     Route: 048
     Dates: start: 20220111, end: 20220111
  2. MIRTAZAPINE [Suspect]
     Active Substance: MIRTAZAPINE
     Indication: Product administration error
     Dosage: 30 MG, ARROW
     Route: 048
     Dates: start: 20220111, end: 20220111
  3. SINEMET [Suspect]
     Active Substance: CARBIDOPA\LEVODOPA
     Indication: Product administration error
     Dosage: 3 DOSAGE FORMS, LP 200 MG/50 MG
     Route: 048
     Dates: start: 20220111, end: 20220111
  4. TAMSULOSIN [Suspect]
     Active Substance: TAMSULOSIN
     Indication: Product administration error
     Dosage: ALMUS L.P. UNIT DOSE AND FORM STRENGTH : 0.4 MG
     Route: 048
     Dates: start: 20220111, end: 20220111
  5. ALPRAZOLAM [Suspect]
     Active Substance: ALPRAZOLAM
     Indication: Product administration error
     Dosage: UNIT DOSE:0.5 MG, ARROW, FORM STRENGTH: 0.25 MG,
     Route: 048
     Dates: start: 20220111, end: 20220111
  6. TASMAR [Suspect]
     Active Substance: TOLCAPONE
     Indication: Product administration error
     Dosage: UNIT DOSE: 200 MG, FORM STRENGTH: 100 MG
     Route: 048
     Dates: start: 20220111, end: 20220111
  7. CELIPROLOL [Suspect]
     Active Substance: CELIPROLOL
     Indication: Product administration error
     Dosage: FORM STRENGTH : 200 MG, UNIT DOSE: 100 MG
     Route: 048
     Dates: start: 20220111, end: 20220111

REACTIONS (4)
  - Dyspnoea [Recovered/Resolved]
  - Altered state of consciousness [Recovered/Resolved]
  - Wrong patient [Recovered/Resolved]
  - Product administration error [Recovered/Resolved]

NARRATIVE: CASE EVENT DATE: 20220111
